FAERS Safety Report 5952116-6 (Version None)
Quarter: 2008Q4

REPORT INFORMATION
  Report Type: 
  Country: None (occurrence: None)
  Receive Date: 20081113
  Receipt Date: 20080508
  Transmission Date: 20090506
  Serious: No
  Sender: FDA-Public Use
  Company Number: A0725874A

PATIENT
  Age: 80 Year
  Sex: Female

DRUGS (8)
  1. COREG [Suspect]
     Dosage: 3.125MG TWICE PER DAY
     Route: 048
     Dates: start: 20070101
  2. CEFTIN [Suspect]
     Indication: DRUG USE FOR UNKNOWN INDICATION
     Dates: start: 20080422
  3. PLAVIX [Concomitant]
  4. CRESTOR [Concomitant]
  5. ASPIRIN [Concomitant]
  6. TRICOR [Concomitant]
  7. INSULIN [Concomitant]
  8. PRANDIN [Concomitant]

REACTIONS (3)
  - DIZZINESS [None]
  - FATIGUE [None]
  - HYPERSENSITIVITY [None]
